FAERS Safety Report 9329043 (Version 1)
Quarter: 2013Q2

REPORT INFORMATION
  Report Type: Spontaneous
  Country: US (occurrence: US)
  Receive Date: 20130604
  Receipt Date: 20130604
  Transmission Date: 20140414
  Serious: No
  Sender: FDA-Public Use
  Company Number: US-SANOFI-AVENTIS-2012SA072211

PATIENT
  Age: 59 Year
  Sex: Male
  Weight: 116 kg

DRUGS (3)
  1. LANTUS [Suspect]
     Indication: TYPE 2 DIABETES MELLITUS
     Dosage: 80 UNITS IN MORNING AND 85 UNITS AT NIGHT
     Route: 058
     Dates: start: 201208
  2. HUMALOG [Concomitant]
     Indication: TYPE 2 DIABETES MELLITUS
  3. METFORMIN [Concomitant]
     Indication: DIABETES MELLITUS
     Dates: start: 1999

REACTIONS (4)
  - Weight decreased [Unknown]
  - Blood glucose increased [Recovered/Resolved]
  - Drug ineffective [Unknown]
  - Glycosylated haemoglobin increased [Not Recovered/Not Resolved]
